FAERS Safety Report 14701831 (Version 4)
Quarter: 2020Q2

REPORT INFORMATION
  Report Type: Spontaneous
  Country: BR (occurrence: BR)
  Receive Date: 20180331
  Receipt Date: 20200417
  Transmission Date: 20200713
  Serious: Yes (Other)
  Sender: FDA-Public Use
  Company Number: BR-EMD SERONO-7083438

PATIENT
  Sex: Male

DRUGS (8)
  1. NAPRIX [Concomitant]
     Active Substance: RAMIPRIL
     Indication: PROTEINURIA
  2. METICORTEN [Concomitant]
     Active Substance: PREDNISONE
     Indication: INFLAMMATION
  3. DIPIRONE [Concomitant]
     Active Substance: METAMIZOLE SODIUM
     Indication: PRODUCT USED FOR UNKNOWN INDICATION
  4. PARACETAMOL [Concomitant]
     Active Substance: ACETAMINOPHEN
     Indication: PRODUCT USED FOR UNKNOWN INDICATION
  5. ACETYLSALICYLIC ACID [Suspect]
     Active Substance: ASPIRIN
     Indication: PRODUCT USED FOR UNKNOWN INDICATION
  6. REBIF [Suspect]
     Active Substance: INTERFERON BETA-1A
     Indication: RELAPSING-REMITTING MULTIPLE SCLEROSIS
     Route: 058
     Dates: start: 20040301
  7. BIO-MANGUINHOS BETAINTERFERONA 1A 44 MCG [Suspect]
     Active Substance: INTERFERON BETA-1A
     Indication: MULTIPLE SCLEROSIS
     Route: 058
  8. ENALAPRIL [Concomitant]
     Active Substance: ENALAPRIL
     Indication: INFLAMMATION

REACTIONS (9)
  - Lipodystrophy acquired [Unknown]
  - Lack of injection site rotation [Unknown]
  - Proteinuria [Not Recovered/Not Resolved]
  - Pyrexia [Unknown]
  - Wrong technique in product usage process [Unknown]
  - Injection site nodule [Unknown]
  - Injection site fibrosis [Unknown]
  - Drug hypersensitivity [Unknown]
  - Kidney fibrosis [Not Recovered/Not Resolved]

NARRATIVE: CASE EVENT DATE: 2012
